FAERS Safety Report 9643208 (Version 1)
Quarter: 2013Q4

REPORT INFORMATION
  Report Type: Spontaneous
  Country: US (occurrence: US)
  Receive Date: 20131024
  Receipt Date: 20131024
  Transmission Date: 20140711
  Serious: No
  Sender: FDA-Public Use
  Company Number: US-009507513-1310USA010855

PATIENT
  Sex: Female

DRUGS (3)
  1. DULERA [Suspect]
     Indication: ASTHMA
     Dosage: 2 PUFFS, BID
     Route: 055
     Dates: start: 20130912
  2. SINGULAIR [Concomitant]
     Dosage: UNKNOWN
  3. ZYRTEC [Concomitant]
     Dosage: UNKNOWN

REACTIONS (3)
  - Oropharyngeal discomfort [Not Recovered/Not Resolved]
  - Drug dose omission [Unknown]
  - Product quality issue [Unknown]
